FAERS Safety Report 20576765 (Version 1)
Quarter: 2022Q1

REPORT INFORMATION
  Report Type: Spontaneous
  Country: US (occurrence: None)
  Receive Date: 20220309
  Receipt Date: 20220309
  Transmission Date: 20220423
  Serious: Yes (Hospitalization)
  Sender: FDA-Public Use
  Company Number: None

PATIENT
  Age: 69 Year
  Sex: Male

DRUGS (5)
  1. ESBRIET [Suspect]
     Active Substance: PIRFENIDONE
     Indication: Idiopathic pulmonary fibrosis
     Dosage: FREQUENCY : TWICE A DAY;?3 CAPSULES= 801 MG
     Route: 048
     Dates: start: 20211202
  2. ALKA-SELTZER TAB 500MG [Concomitant]
  3. LITHIUM CARBONATE [Concomitant]
     Active Substance: LITHIUM CARBONATE
  4. MULTIVITAMIN TAB ADULTS [Concomitant]
  5. RISPERDAL TAB 4MG [Concomitant]

REACTIONS (3)
  - Intra-abdominal haemorrhage [None]
  - Appetite disorder [None]
  - Sleep disorder [None]

NARRATIVE: CASE EVENT DATE: 20220304
